FAERS Safety Report 5524363-9 (Version None)
Quarter: 2007Q4

REPORT INFORMATION
  Report Type: 
  Country: None (occurrence: None)
  Receive Date: 20071121
  Receipt Date: 20071114
  Transmission Date: 20080405
  Serious: Yes (Other)
  Sender: FDA-Public Use
  Company Number: JP-PFIZER INC-2007096209

PATIENT
  Sex: Male

DRUGS (1)
  1. XALATAN [Suspect]
     Route: 031
     Dates: start: 20070917, end: 20071031

REACTIONS (1)
  - VISUAL FIELD DEFECT [None]
